FAERS Safety Report 12890988 (Version 1)
Quarter: 2016Q4

REPORT INFORMATION
  Report Type: Spontaneous
  Country: US (occurrence: US)
  Receive Date: 20161026
  Receipt Date: 20161026
  Transmission Date: 20170207
  Serious: Yes (Other)
  Sender: FDA-Public Use
  Company Number: None

PATIENT

DRUGS (1)
  1. DILTIAZEM. [Suspect]
     Active Substance: DILTIAZEM

REACTIONS (4)
  - Insomnia [None]
  - Headache [None]
  - Blood pressure increased [None]
  - Product substitution issue [None]
